FAERS Safety Report 13216879 (Version 1)
Quarter: 2017Q1

REPORT INFORMATION
  Report Type: Other
  Country: US (occurrence: US)
  Receive Date: 20170210
  Receipt Date: 20170210
  Transmission Date: 20170428
  Serious: No
  Sender: FDA-Public Use
  Company Number: US-ACORDA-ACO_123459_2016

PATIENT
  Sex: Female

DRUGS (1)
  1. AMPYRA [Suspect]
     Active Substance: DALFAMPRIDINE
     Indication: PRODUCT USED FOR UNKNOWN INDICATION
     Dosage: 10 MG, Q 12 HRS
     Route: 048
     Dates: start: 20150226

REACTIONS (14)
  - Memory impairment [Unknown]
  - Confusional state [Unknown]
  - Fall [Recovered/Resolved]
  - Muscular weakness [Unknown]
  - Memory impairment [Recovered/Resolved]
  - Fall [Unknown]
  - Gait disturbance [Recovered/Resolved]
  - Aphasia [Unknown]
  - Paraesthesia [Unknown]
  - Hemiparesis [Unknown]
  - Restlessness [Recovered/Resolved]
  - Hypoaesthesia [Unknown]
  - Condition aggravated [Recovered/Resolved]
  - Walking aid user [Unknown]

NARRATIVE: CASE EVENT DATE: 2016
